FAERS Safety Report 5113057-X (Version None)
Quarter: 2006Q3

REPORT INFORMATION
  Report Type: 
  Country: None (occurrence: None)
  Receive Date: 20060922
  Receipt Date: 20060606
  Transmission Date: 20061208
  Serious: Yes (Death, Hospitalization, Disabling, Other)
  Sender: FDA-Public Use
  Company Number: US-BOEHRINGER INGELHEIM PHARMACEUTICALS, INC.-2006-BP-06521BP

PATIENT
  Age: 44 Year
  Sex: Male

DRUGS (9)
  1. APTIVUS/RITONAVIR CAPSULES [Suspect]
     Indication: HIV INFECTION
     Dosage: TPV/RTV 1000/200 MG
     Route: 048
     Dates: start: 20050628, end: 20051022
  2. DEMEROL [Concomitant]
  3. PROTONIX [Concomitant]
     Route: 048
     Dates: start: 20050628, end: 20051022
  4. BACTRIM [Concomitant]
     Dates: start: 20050628, end: 20051022
  5. KLONOPIN [Concomitant]
     Dates: start: 20050628, end: 20051022
  6. AMBIEN [Concomitant]
     Route: 048
     Dates: start: 20050628, end: 20051022
  7. FUZEON [Concomitant]
     Indication: HIV INFECTION
     Route: 058
     Dates: start: 20050628, end: 20051022
  8. EPZICOM [Concomitant]
     Indication: HIV INFECTION
     Route: 048
     Dates: start: 20050628, end: 20051022
  9. DIFLUCAN [Concomitant]
     Route: 048
     Dates: start: 20050628, end: 20051022

REACTIONS (7)
  - ANAEMIA [None]
  - CACHEXIA [None]
  - DIARRHOEA [None]
  - HAEMATOCHEZIA [None]
  - METASTASES TO LUNG [None]
  - OESOPHAGEAL ADENOCARCINOMA STAGE IV [None]
  - UPPER GASTROINTESTINAL HAEMORRHAGE [None]
